FAERS Safety Report 6504614-4 (Version None)
Quarter: 2009Q4

REPORT INFORMATION
  Report Type: 
  Country: None (occurrence: None)
  Receive Date: 20091215
  Receipt Date: 20091204
  Transmission Date: 20100525
  Serious: Yes (Hospitalization)
  Sender: FDA-Public Use
  Company Number: 2009AC000479

PATIENT
  Age: 84 Year

DRUGS (13)
  1. DIGOXIN [Suspect]
     Dosage: PO
     Route: 048
  2. ASPIRIN [Concomitant]
  3. COREG [Concomitant]
  4. HYTRIN [Concomitant]
  5. POTASSIUM [Concomitant]
  6. PROSCAR [Concomitant]
  7. LEVOTHYROXINE SODIUM [Concomitant]
  8. CHLORTHALIDONE [Concomitant]
  9. DICLOFENAC SODIUM [Concomitant]
  10. ZOLOFT [Concomitant]
  11. FISH OIL [Concomitant]
  12. GLUCOSAMINE CHONDROITIN [Concomitant]
  13. MULTI-VITAMIN [Concomitant]

REACTIONS (2)
  - DYSKINESIA [None]
  - PALPITATIONS [None]
